FAERS Safety Report 5225747-9 (Version None)
Quarter: 2007Q1

REPORT INFORMATION
  Report Type: 
  Country: None (occurrence: None)
  Receive Date: 20070131
  Receipt Date: 20070131
  Transmission Date: 20070707
  Serious: Yes (Life-Threatening, Hospitalization, Disabling, Other)
  Sender: FDA-Public Use
  Company Number: None

PATIENT
  Age: 69 Year
  Sex: Female
  Weight: 80.1052 kg

DRUGS (4)
  1. LISINOPRIL AND HYDROCHLOROTHIAZIDE [Suspect]
     Indication: HYPERTENSION
     Dosage: 1 TABLET  ONCE DAILY PO
     Route: 048
     Dates: start: 20061012, end: 20061015
  2. LISINOPRIL [Suspect]
     Indication: HYPERTENSION
     Dosage: 1 TABLET  ONCE DAILY PO
     Route: 048
     Dates: start: 20061003, end: 20061012
  3. ZESTRIL [Concomitant]
  4. ZESTORETIC [Concomitant]

REACTIONS (1)
  - ANGIOEDEMA [None]
